FAERS Safety Report 8393350-8 (Version None)
Quarter: 2012Q2

REPORT INFORMATION
  Report Type: 
  Country: None (occurrence: None)
  Receive Date: 20120529
  Receipt Date: 20120515
  Transmission Date: 20120825
  Serious: Yes (Death)
  Sender: FDA-Public Use
  Company Number: NO-VALEANT-2012VX002211

PATIENT

DRUGS (6)
  1. THERAPEUTIC RADIOPHARMACEUTICALS [Suspect]
     Route: 065
  2. CISPLATIN [Suspect]
     Route: 042
  3. DEXAMETHASONE [Concomitant]
     Route: 065
  4. FLUOROURACIL [Suspect]
     Route: 042
  5. METOCLOPRAMIDE [Concomitant]
     Route: 065
  6. ONDANSETRON [Concomitant]
     Route: 065

REACTIONS (4)
  - THROMBOCYTOPENIA [None]
  - NEUTROPENIC SEPSIS [None]
  - NEUTROPENIA [None]
  - LEUKOPENIA [None]
